FAERS Safety Report 15900512 (Version 2)
Quarter: 2019Q1

REPORT INFORMATION
  Report Type: Spontaneous
  Country: US (occurrence: US)
  Receive Date: 20190201
  Receipt Date: 20190222
  Transmission Date: 20190417
  Serious: Yes (Hospitalization, Other)
  Sender: FDA-Public Use
  Company Number: US-ALEXION PHARMACEUTICALS INC.-A201901540

PATIENT
  Sex: Female

DRUGS (1)
  1. SOLIRIS [Suspect]
     Active Substance: ECULIZUMAB
     Indication: PRODUCT USED FOR UNKNOWN INDICATION
     Route: 065

REACTIONS (7)
  - Post procedural swelling [Unknown]
  - Swelling [Unknown]
  - Haemodialysis [Unknown]
  - Deep vein thrombosis [Unknown]
  - Arteriovenous fistula operation [Unknown]
  - Blood disorder [Unknown]
  - Hepatitis B [Unknown]
